FAERS Safety Report 5071145-0 (Version None)
Quarter: 2006Q3

REPORT INFORMATION
  Report Type: 
  Country: None (occurrence: None)
  Receive Date: 20060804
  Receipt Date: 20060302
  Transmission Date: 20061208
  Serious: No
  Sender: FDA-Public Use
  Company Number: US-GLAXOSMITHKLINE-A0595852A

PATIENT
  Age: 37 Year

DRUGS (2)
  1. NICORETTE [Suspect]
  2. NICORETTE (MINT) [Suspect]

REACTIONS (2)
  - DRY THROAT [None]
  - PHARYNGOLARYNGEAL PAIN [None]
